FAERS Safety Report 9468085 (Version 1)
Quarter: 2013Q3

REPORT INFORMATION
  Report Type: Spontaneous
  Country: BR (occurrence: BR)
  Receive Date: 20130821
  Receipt Date: 20130821
  Transmission Date: 20140515
  Serious: Yes (Other)
  Sender: FDA-Public Use
  Company Number: BR-ELI_LILLY_AND_COMPANY-BR201308003744

PATIENT
  Age: 77 Year
  Sex: Female
  Weight: 60 kg

DRUGS (11)
  1. HUMULIN N [Suspect]
     Indication: DIABETES MELLITUS
     Dosage: 5 IU, BID
     Route: 058
     Dates: start: 20130820
  2. INSULIN LISPRO [Suspect]
     Indication: DIABETES MELLITUS
     Dosage: UNK, UNKNOWN
     Route: 058
     Dates: start: 201306
  3. MONOCORDIL [Concomitant]
     Indication: CARDIAC DISORDER
     Dosage: UNK, QD
     Route: 065
  4. VASTAREL [Concomitant]
     Dosage: UNK, BID
     Route: 065
  5. SUSTRATE [Concomitant]
     Dosage: 5 MG, BID
     Route: 065
  6. ACIDO FOLICO [Concomitant]
     Dosage: 5 MG, QD
     Route: 065
  7. VITAMINA D [Concomitant]
     Dosage: 20000 IU, QD
     Route: 065
  8. PANTOPRAZOL [Concomitant]
     Dosage: 20 MG, QD
     Route: 065
  9. ATORVASTATINA [Concomitant]
     Dosage: 20 MG, QD
     Route: 065
  10. ASPIRINA [Concomitant]
     Dosage: 100 MG, QD
     Route: 065
  11. COMPLEXO B                         /00003501/ [Concomitant]
     Dosage: UNK, BID
     Route: 065

REACTIONS (2)
  - Renal failure chronic [Not Recovered/Not Resolved]
  - Hypoglycaemia [Unknown]
